FAERS Safety Report 9492195 (Version 1)
Quarter: 2013Q3

REPORT INFORMATION
  Report Type: Spontaneous
  Country: GB (occurrence: GB)
  Receive Date: 20130830
  Receipt Date: 20130830
  Transmission Date: 20140515
  Serious: Yes (Life-Threatening, Hospitalization)
  Sender: FDA-Public Use
  Company Number: GB-ROCHE-1266011

PATIENT
  Age: 69 Year
  Sex: Male
  Weight: 69.5 kg

DRUGS (8)
  1. RITUXIMAB [Suspect]
     Indication: STEM CELL TRANSPLANT
     Route: 042
     Dates: start: 20130726, end: 20130802
  2. FOLIC ACID [Concomitant]
  3. AZITHROMYCIN [Concomitant]
  4. CICLOSPORIN [Concomitant]
  5. MAGNESIUM HYDROXIDE [Concomitant]
  6. METOCLOPRAMIDE [Concomitant]
  7. PENICILLIN V [Concomitant]
  8. RANITIDINE BISMUTH CITRATE [Concomitant]

REACTIONS (8)
  - Dyspnoea [Unknown]
  - Dizziness [Unknown]
  - Epstein-Barr virus infection [Unknown]
  - Human herpesvirus 6 infection [Unknown]
  - Interstitial lung disease [Unknown]
  - Malaise [Unknown]
  - Multi-organ failure [Unknown]
  - Pneumonitis [Not Recovered/Not Resolved]
